FAERS Safety Report 17659972 (Version 1)
Quarter: 2020Q2

REPORT INFORMATION
  Report Type: Other
  Country: US (occurrence: US)
  Receive Date: 20200413
  Receipt Date: 20200413
  Transmission Date: 20200713
  Serious: Yes (Hospitalization)
  Sender: FDA-Public Use
  Company Number: US-AJANTA PHARMA USA INC.-2082721

PATIENT
  Age: 41 Year
  Sex: Female

DRUGS (10)
  1. SULFAMETHOXAZOLE AND TRIMETHOPRIM [Concomitant]
     Active Substance: SULFAMETHOXAZOLE\TRIMETHOPRIM
  2. THORAZINE [Concomitant]
     Active Substance: CHLORPROMAZINE
  3. AZITHROMYCIN ANHYDROUS. [Concomitant]
     Active Substance: AZITHROMYCIN ANHYDROUS
  4. VORICONAZOLE. [Suspect]
     Active Substance: VORICONAZOLE
     Indication: MENINGOENCEPHALITIS AMOEBIC
     Route: 048
  5. LEVOTHYROXINE. [Concomitant]
     Active Substance: LEVOTHYROXINE
  6. LEVETIRACETAM. [Concomitant]
     Active Substance: LEVETIRACETAM
  7. MILTEFOSINE [Concomitant]
     Active Substance: MILTEFOSINE
  8. FLUCYTOSINE. [Concomitant]
     Active Substance: FLUCYTOSINE
  9. CETIRIZINE [Concomitant]
     Active Substance: CETIRIZINE HYDROCHLORIDE
  10. DEXAMETHASONE. [Concomitant]
     Active Substance: DEXAMETHASONE

REACTIONS (3)
  - Pancytopenia [Recovered/Resolved]
  - Blastomycosis [Recovered/Resolved]
  - Neutropenia [Recovered/Resolved]
